FAERS Safety Report 9974502 (Version 2)
Quarter: 2014Q2

REPORT INFORMATION
  Report Type: Spontaneous
  Country: US (occurrence: US)
  Receive Date: 20140306
  Receipt Date: 20140512
  Transmission Date: 20141212
  Serious: Yes (Death)
  Sender: FDA-Public Use
  Company Number: US-CELGENEUS-163-22393-14030230

PATIENT
  Sex: Male

DRUGS (2)
  1. ISTODAX [Suspect]
     Indication: LYMPHOMA
     Dosage: 28 MILLIGRAM
     Route: 041
     Dates: start: 20130507, end: 20130909
  2. ISTODAX [Suspect]
     Dosage: 28 MILLIGRAM
     Route: 041
     Dates: start: 20140116, end: 20140123

REACTIONS (1)
  - T-cell lymphoma [Fatal]
